FAERS Safety Report 15110850 (Version 1)
Quarter: 2018Q3

REPORT INFORMATION
  Report Type: Spontaneous
  Country: US (occurrence: US)
  Receive Date: 20180705
  Receipt Date: 20180705
  Transmission Date: 20181010
  Serious: Yes (Other)
  Sender: FDA-Public Use
  Company Number: US-GILEAD-2018-0348475

PATIENT
  Age: 40 Year
  Sex: Female

DRUGS (2)
  1. COBICISTAT W/DARUNAVIR [Concomitant]
     Active Substance: COBICISTAT\DARUNAVIR ETHANOLATE
  2. COMPLERA [Suspect]
     Active Substance: EMTRICITABINE\RILPIVIRINE HYDROCHLORIDE\TENOFOVIR DISOPROXIL FUMARATE
     Indication: HIV INFECTION
     Route: 065

REACTIONS (4)
  - Multiple drug therapy [Unknown]
  - Genotype drug resistance test positive [Not Recovered/Not Resolved]
  - Drug ineffective [Unknown]
  - Product size issue [Recovered/Resolved]
